FAERS Safety Report 16012849 (Version 2)
Quarter: 2020Q3

REPORT INFORMATION
  Report Type: Spontaneous
  Country: US (occurrence: US)
  Receive Date: 20190227
  Receipt Date: 20200818
  Transmission Date: 20201102
  Serious: Yes (Other)
  Sender: FDA-Public Use
  Company Number: PHEH2019US008757

PATIENT
  Sex: Male

DRUGS (3)
  1. TASIGNA [Suspect]
     Active Substance: NILOTINIB
     Dosage: UNK
     Route: 048
     Dates: end: 201701
  2. TASIGNA [Suspect]
     Active Substance: NILOTINIB
     Indication: CHRONIC MYELOID LEUKAEMIA
     Dosage: UNK
     Route: 048
     Dates: start: 201303
  3. TASIGNA [Suspect]
     Active Substance: NILOTINIB
     Dosage: UNK, BID
     Route: 048
     Dates: start: 20150924

REACTIONS (14)
  - Aortic stenosis [Unknown]
  - Anxiety [Unknown]
  - Bradycardia [Unknown]
  - Chronic kidney disease [Unknown]
  - Chest pain [Unknown]
  - Injury [Unknown]
  - Oedema peripheral [Unknown]
  - Anaemia [Unknown]
  - Dyspnoea exertional [Unknown]
  - Pain [Unknown]
  - Erectile dysfunction [Unknown]
  - Chronic kidney disease-mineral and bone disorder [Unknown]
  - Coronary artery disease [Unknown]
  - Emotional distress [Unknown]
